FAERS Safety Report 14484757 (Version 1)
Quarter: 2018Q1

REPORT INFORMATION
  Report Type: Other
  Country: DE (occurrence: DE)
  Receive Date: 20180205
  Receipt Date: 20180205
  Transmission Date: 20180509
  Serious: Yes (Hospitalization, Other)
  Sender: FDA-Public Use
  Company Number: DE-GLENMARK PHARMACEUTICALS-2017GMK031088

PATIENT

DRUGS (13)
  1. LITHIUM. [Suspect]
     Active Substance: LITHIUM
     Indication: BORDERLINE PERSONALITY DISORDER
     Dosage: 450 MG, UNK
     Route: 048
     Dates: start: 20161012, end: 20161017
  2. LITHIUM. [Suspect]
     Active Substance: LITHIUM
     Dosage: 450 MG, UNK
     Route: 048
     Dates: start: 20161212, end: 20161214
  3. LITHIUM. [Suspect]
     Active Substance: LITHIUM
     Dosage: 1125 MG, UNK
     Route: 048
     Dates: start: 20161101, end: 20161202
  4. LITHIUM. [Suspect]
     Active Substance: LITHIUM
     Dosage: 675 MG, UNK
     Route: 048
     Dates: start: 20161203, end: 20161204
  5. LITHIUM. [Suspect]
     Active Substance: LITHIUM
     Dosage: 675 MG, UNK
     Route: 048
     Dates: start: 20161205, end: 20161207
  6. LITHIUM. [Suspect]
     Active Substance: LITHIUM
     Dosage: 450 MG, UNK
     Route: 048
     Dates: start: 20161208, end: 20161211
  7. RISPERDAL [Suspect]
     Active Substance: RISPERIDONE
     Indication: BORDERLINE PERSONALITY DISORDER
     Dosage: 3 MG, UNK
     Route: 048
     Dates: end: 20161220
  8. REMERGIL [Concomitant]
     Active Substance: MIRTAZAPINE
     Indication: PRODUCT USED FOR UNKNOWN INDICATION
     Dosage: 45 MG, UNK
     Route: 048
  9. LITHIUM. [Suspect]
     Active Substance: LITHIUM
     Dosage: 450 MG, UNK
     Route: 048
     Dates: start: 20161018, end: 20161023
  10. LORAZEPAM. [Concomitant]
     Active Substance: LORAZEPAM
     Indication: PRODUCT USED FOR UNKNOWN INDICATION
     Dosage: UNK
     Route: 048
  11. TRUXAL [Concomitant]
     Active Substance: CHLORPROTHIXENE
     Indication: PRODUCT USED FOR UNKNOWN INDICATION
     Dosage: 140 MG, UNK
     Route: 048
  12. LITHIUM. [Suspect]
     Active Substance: LITHIUM
     Dosage: 450 MG, UNK
     Route: 048
     Dates: start: 20161024, end: 20161031
  13. ZOLOFT [Concomitant]
     Active Substance: SERTRALINE HYDROCHLORIDE
     Indication: PRODUCT USED FOR UNKNOWN INDICATION
     Dosage: UNK
     Route: 048

REACTIONS (6)
  - Hospitalisation [Unknown]
  - Off label use [Unknown]
  - Pruritus [Recovered/Resolved]
  - Keratosis pilaris [Unknown]
  - Product used for unknown indication [Unknown]
  - Angioedema [Recovered/Resolved]

NARRATIVE: CASE EVENT DATE: 20160904
